FAERS Safety Report 4463846-X (Version None)
Quarter: 2004Q3

REPORT INFORMATION
  Report Type: 
  Country: None (occurrence: None)
  Receive Date: 20040929
  Receipt Date: 20040913
  Transmission Date: 20050211
  Serious: Yes (Life-Threatening, Hospitalization)
  Sender: FDA-Public Use
  Company Number: 2004060890

PATIENT
  Age: 83 Year
  Sex: Male
  Weight: 76 kg

DRUGS (2)
  1. NEURONTIN [Suspect]
     Indication: CONVULSION
     Dosage: 1200 MG (400 MG, 3 IN 1 D), ORAL
     Route: 048
     Dates: start: 20040601, end: 20040803
  2. CITALOPRAM HYDROBROMIDE (CITALOPRAM HYDROBROMIDE) [Suspect]
     Indication: DEPRESSION
     Dosage: 20 MG (20 MG, 1 IN 1 D), ORAL
     Route: 048
     Dates: start: 20030101, end: 20040803

REACTIONS (3)
  - CONFUSIONAL STATE [None]
  - NARCOLEPSY [None]
  - OXYGEN SATURATION DECREASED [None]
